FAERS Safety Report 7104780-6 (Version None)
Quarter: 2010Q4

REPORT INFORMATION
  Report Type: 
  Country: None (occurrence: None)
  Receive Date: 20101109
  Receipt Date: 20101026
  Transmission Date: 20110411
  Serious: Yes (Other)
  Sender: FDA-Public Use
  Company Number: DSJ-2010-15978

PATIENT
  Age: 79 Year
  Sex: Male

DRUGS (5)
  1. OLMESARTAN MEDOXOMIL [Suspect]
     Indication: PRODUCT USED FOR UNKNOWN INDICATION
     Dosage: 10 MG, PER ORAL
     Route: 048
     Dates: start: 20080801, end: 20100802
  2. OLMESARTAN MEDOXOMIL [Suspect]
     Indication: PRODUCT USED FOR UNKNOWN INDICATION
     Dosage: 10 MG, PER ORAL
     Route: 048
     Dates: start: 20100823, end: 20100826
  3. PRAVASTATIN SODIUM [Suspect]
     Indication: PRODUCT USED FOR UNKNOWN INDICATION
     Dosage: 5 MG, PER ORAL
     Route: 048
     Dates: start: 20100401, end: 20100802
  4. NORVASC [Suspect]
     Indication: HYPERTENSION
     Dosage: 5 MG, PER ORAL
     Route: 048
     Dates: start: 20061201, end: 20100802
  5. NORVASC [Suspect]
     Indication: HYPERTENSION
     Dosage: 5 MG, PER ORAL
     Route: 048
     Dates: start: 20100512, end: 20100819

REACTIONS (9)
  - ALANINE AMINOTRANSFERASE INCREASED [None]
  - ASPARTATE AMINOTRANSFERASE INCREASED [None]
  - BLOOD ALKALINE PHOSPHATASE INCREASED [None]
  - BLOOD PRESSURE INCREASED [None]
  - DIZZINESS [None]
  - EOSINOPHIL COUNT INCREASED [None]
  - GAMMA-GLUTAMYLTRANSFERASE INCREASED [None]
  - HEADACHE [None]
  - LIVER DISORDER [None]
